FAERS Safety Report 8254862-0 (Version None)
Quarter: 2012Q2

REPORT INFORMATION
  Report Type: 
  Country: None (occurrence: None)
  Receive Date: 20120403
  Receipt Date: 20120323
  Transmission Date: 20120825
  Serious: Yes (Hospitalization, Other)
  Sender: FDA-Public Use
  Company Number: JP-GENZYME-THYM-1003197

PATIENT
  Sex: Female
  Weight: 44 kg

DRUGS (19)
  1. THYMOGLOBULIN [Suspect]
     Indication: BONE MARROW CONDITIONING REGIMEN
     Dosage: 111 MG, QD
     Route: 042
     Dates: start: 20110716, end: 20110717
  2. TACROLIMUS [Concomitant]
     Dosage: UNK
     Route: 065
     Dates: start: 20110912, end: 20111013
  3. HUMAN RED BLOOD CELLS [Concomitant]
     Indication: ACUTE LYMPHOCYTIC LEUKAEMIA
     Dosage: UNK
     Route: 065
     Dates: start: 20110728, end: 20110731
  4. BUSULFAN [Concomitant]
     Indication: ACUTE LYMPHOCYTIC LEUKAEMIA
     Dosage: UNK
     Route: 065
     Dates: start: 20110718, end: 20110719
  5. POLYETHYLENE GLYCOL TREATED HUMAN NORMAL IMMUNOGLOBULIN [Concomitant]
     Indication: INFECTION PROPHYLAXIS
     Dosage: UNK
     Route: 065
     Dates: start: 20110723, end: 20110820
  6. CEFEPIME [Concomitant]
     Indication: ANTIBIOTIC PROPHYLAXIS
     Dosage: UNK
     Route: 065
     Dates: start: 20111103, end: 20111103
  7. NEUPOGEN [Concomitant]
     Indication: COLONY STIMULATING FACTOR THERAPY
     Dosage: UNK
     Route: 065
     Dates: start: 20110723, end: 20110810
  8. METHYLPREDNISOLONE [Concomitant]
     Indication: PROPHYLAXIS AGAINST GRAFT VERSUS HOST DISEASE
     Dosage: UNK
     Route: 065
     Dates: start: 20110815, end: 20111013
  9. MEROPENEM [Concomitant]
     Indication: ANTIBIOTIC PROPHYLAXIS
     Dosage: UNK
     Route: 065
     Dates: start: 20111213, end: 20111227
  10. FLUDARABINE PHOSPHATE [Concomitant]
     Indication: ACUTE LYMPHOCYTIC LEUKAEMIA
     Dosage: UNK
     Route: 065
     Dates: start: 20110716, end: 20110720
  11. MELPHALAN HYDROCHLORIDE [Concomitant]
     Indication: ACUTE LYMPHOCYTIC LEUKAEMIA
     Dosage: UNK
     Route: 065
     Dates: start: 20110720, end: 20110720
  12. FOSCARNET SODIUM [Concomitant]
     Indication: ANTIVIRAL PROPHYLAXIS
     Dosage: UNK
     Route: 065
     Dates: start: 20111102, end: 20111106
  13. GANCICLOVIR [Concomitant]
     Indication: ANTIVIRAL PROPHYLAXIS
     Dosage: UNK
     Route: 065
     Dates: start: 20111107, end: 20111122
  14. GANCICLOVIR [Concomitant]
     Dosage: UNK
     Route: 065
     Dates: start: 20111205, end: 20111222
  15. TACROLIMUS [Concomitant]
     Indication: PROPHYLAXIS AGAINST GRAFT VERSUS HOST DISEASE
     Dosage: UNK
     Route: 065
     Dates: start: 20110719, end: 20110911
  16. MICAFUNGIN SODIUM [Concomitant]
     Indication: ANTIFUNGAL PROPHYLAXIS
     Dosage: UNK
     Route: 065
     Dates: start: 20111028
  17. PLATELETS [Concomitant]
     Indication: ACUTE LYMPHOCYTIC LEUKAEMIA
     Dosage: UNK
     Route: 065
     Dates: start: 20110730, end: 20110816
  18. METHYLPREDNISOLONE [Concomitant]
     Dosage: UNK
     Route: 065
     Dates: start: 20111102
  19. CEFEPIME [Concomitant]
     Dosage: UNK
     Route: 065
     Dates: start: 20111203, end: 20111212

REACTIONS (7)
  - DIARRHOEA [None]
  - ASPERGILLUS TEST POSITIVE [None]
  - ACUTE GRAFT VERSUS HOST DISEASE IN SKIN [None]
  - ACUTE GRAFT VERSUS HOST DISEASE IN INTESTINE [None]
  - MELAENA [None]
  - NEPHROGENIC DIABETES INSIPIDUS [None]
  - CYTOMEGALOVIRUS TEST POSITIVE [None]
